FAERS Safety Report 23453071 (Version 1)
Quarter: 2024Q1

REPORT INFORMATION
  Report Type: Spontaneous
  Country: US (occurrence: None)
  Receive Date: 20240129
  Receipt Date: 20240129
  Transmission Date: 20240409
  Serious: Yes (Other)
  Sender: FDA-Public Use
  Company Number: 2024A015615

PATIENT
  Age: 69 Year
  Sex: Female

DRUGS (2)
  1. OSIMERTINIB [Suspect]
     Active Substance: OSIMERTINIB
     Indication: Lung adenocarcinoma stage III
     Route: 048
  2. OSILODROSTAT [Concomitant]
     Active Substance: OSILODROSTAT

REACTIONS (2)
  - Malignant neoplasm progression [Unknown]
  - Pulmonary fibrosis [Unknown]
